FAERS Safety Report 24700390 (Version 1)
Quarter: 2024Q4

REPORT INFORMATION
  Report Type: Spontaneous
  Country: US (occurrence: US)
  Receive Date: 20241205
  Receipt Date: 20241205
  Transmission Date: 20250115
  Serious: No
  Sender: PHARMAESSENTIA
  Company Number: US-PHARMAESSENTIA CORPORATION-US-2024-PEC-004665

PATIENT
  Sex: Male

DRUGS (2)
  1. BESREMI [Suspect]
     Active Substance: ROPEGINTERFERON ALFA-2B-NJFT
     Indication: Product used for unknown indication
     Dosage: 50 MCG
     Route: 065
  2. BESREMI [Suspect]
     Active Substance: ROPEGINTERFERON ALFA-2B-NJFT
     Dosage: 400 MCG
     Route: 065
     Dates: start: 20240923

REACTIONS (2)
  - Influenza like illness [Unknown]
  - Incorrect dose administered [Unknown]

NARRATIVE: CASE EVENT DATE: 20240901
